FAERS Safety Report 15239214 (Version 2)
Quarter: 2018Q3

REPORT INFORMATION
  Report Type: Report from Study
  Country: IE (occurrence: IE)
  Receive Date: 20180803
  Receipt Date: 20180814
  Transmission Date: 20181010
  Serious: Yes (Hospitalization)
  Sender: FDA-Public Use
  Company Number: IE-JNJFOC-20180631763

PATIENT
  Age: 89 Year
  Sex: Female

DRUGS (8)
  1. PONSTAN [Concomitant]
     Active Substance: MEFENAMIC ACID
     Route: 050
  2. ALLOPURINOL. [Concomitant]
     Active Substance: ALLOPURINOL
     Route: 050
  3. CALCIUM CARBONATE. [Concomitant]
     Active Substance: CALCIUM CARBONATE
     Route: 050
  4. PARACETAMOL [Concomitant]
     Active Substance: ACETAMINOPHEN
     Route: 050
  5. IMBRUVICA [Suspect]
     Active Substance: IBRUTINIB
     Indication: CHRONIC LYMPHOCYTIC LEUKAEMIA
     Route: 048
     Dates: start: 20180616
  6. EZETIMIBE. [Concomitant]
     Active Substance: EZETIMIBE
     Route: 050
  7. IBRUTINIB [Concomitant]
     Active Substance: IBRUTINIB
     Route: 048
  8. ESOMEPRAZOLE [Concomitant]
     Active Substance: ESOMEPRAZOLE
     Route: 050

REACTIONS (3)
  - Incorrect dose administered [Unknown]
  - Off label use [Unknown]
  - Blood sodium decreased [Not Recovered/Not Resolved]

NARRATIVE: CASE EVENT DATE: 20180616
